FAERS Safety Report 16669414 (Version 1)
Quarter: 2019Q3

REPORT INFORMATION
  Report Type: Spontaneous
  Country: AU (occurrence: AU)
  Receive Date: 20190805
  Receipt Date: 20190805
  Transmission Date: 20191004
  Serious: Yes (Other)
  Sender: FDA-Public Use
  Company Number: AU-MYLANLABS-2019M1073108

PATIENT
  Age: 46 Year
  Sex: Female

DRUGS (8)
  1. NATAMYCIN [Concomitant]
     Active Substance: NATAMYCIN
     Indication: EXSEROHILUM INFECTION
     Dosage: HOURLY
     Route: 061
  2. CIPROFLOXACIN. [Concomitant]
     Active Substance: CIPROFLOXACIN
     Indication: EXSEROHILUM INFECTION
     Dosage: HOURLY
     Route: 061
  3. VALACICLOVIR [Concomitant]
     Active Substance: VALACYCLOVIR HYDROCHLORIDE
     Indication: INFECTIVE KERATITIS
  4. VORICONAZOLE. [Suspect]
     Active Substance: VORICONAZOLE
     Indication: INFECTIVE KERATITIS
  5. NATAMYCIN [Concomitant]
     Active Substance: NATAMYCIN
     Indication: INFECTIVE KERATITIS
  6. VORICONAZOLE. [Suspect]
     Active Substance: VORICONAZOLE
     Indication: EXSEROHILUM INFECTION
     Dosage: HOURLY
     Route: 061
  7. CIPROFLOXACIN. [Concomitant]
     Active Substance: CIPROFLOXACIN
     Indication: INFECTIVE KERATITIS
  8. VALACICLOVIR [Concomitant]
     Active Substance: VALACYCLOVIR HYDROCHLORIDE
     Indication: EXSEROHILUM INFECTION
     Route: 048

REACTIONS (1)
  - Drug ineffective [Unknown]
